FAERS Safety Report 9447463 (Version 2)
Quarter: 2013Q4

REPORT INFORMATION
  Report Type: Spontaneous
  Country: FR (occurrence: None)
  Receive Date: 20130805
  Receipt Date: 20131018
  Transmission Date: 20140711
  Serious: Yes (Hospitalization)
  Sender: FDA-Public Use
  Company Number: 7226731

PATIENT
  Age: 65 Year
  Sex: Female

DRUGS (12)
  1. LEVOTHYROX [Suspect]
     Dosage: 1 IN 1 D
     Route: 048
  2. DAIMICRON [Suspect]
     Dosage: 2 DF IN 1 D
     Route: 048
  3. EUCREAS [Suspect]
     Indication: DIABETES MELLITUS
     Dosage: 2 IN 1 D
     Route: 048
  4. COAPROVEL [Suspect]
     Indication: HYPERTENSION
     Route: 048
  5. AMLOR [Suspect]
     Indication: HYPERTENSION
     Route: 048
  6. TAHOR [Suspect]
     Indication: HYPERCHOLESTEROLAEMIA
     Route: 048
     Dates: end: 201304
  7. SEROPLEX [Suspect]
     Indication: PRODUCT USED FOR UNKNOWN INDICATION
     Route: 048
     Dates: start: 201212, end: 201304
  8. IXPRIM [Suspect]
     Indication: NECK PAIN
     Route: 048
     Dates: start: 20130314, end: 2013
  9. DOLIPRANE [Suspect]
     Indication: NECK PAIN
     Route: 048
     Dates: start: 20130312, end: 2013
  10. VOLTARENE [Suspect]
     Indication: NECK PAIN
     Dosage: CUTANEOUS
     Dates: start: 20130305, end: 2013
  11. VOLTARENE [Suspect]
     Route: 048
     Dates: start: 20130305, end: 2013
  12. LAMALINE [Suspect]
     Indication: NECK PAIN
     Dates: start: 20130312, end: 2013

REACTIONS (6)
  - Hepatitis cholestatic [None]
  - Neck pain [None]
  - Headache [None]
  - Self-medication [None]
  - Hepatotoxicity [None]
  - Cell death [None]
